FAERS Safety Report 5418238-3 (Version None)
Quarter: 2007Q3

REPORT INFORMATION
  Report Type: 
  Country: None (occurrence: None)
  Receive Date: 20070817
  Receipt Date: 20070815
  Transmission Date: 20080115
  Serious: Yes (Life-Threatening, Hospitalization, Disabling)
  Sender: FDA-Public Use
  Company Number: A0653742A

PATIENT
  Sex: Male

DRUGS (2)
  1. COREG CR [Suspect]
     Route: 048
     Dates: start: 20070101, end: 20070501
  2. COREG [Suspect]
     Route: 048
     Dates: end: 20070501

REACTIONS (2)
  - HYPOTENSION [None]
  - RENAL FAILURE [None]
